FAERS Safety Report 18032612 (Version 1)
Quarter: 2020Q3

REPORT INFORMATION
  Report Type: Report from Study
  Country: BR (occurrence: BR)
  Receive Date: 20200716
  Receipt Date: 20200716
  Transmission Date: 20201103
  Serious: Yes (Other)
  Sender: FDA-Public Use
  Company Number: BR-JNJFOC-20200439082

PATIENT
  Sex: Female
  Weight: 25 kg

DRUGS (2)
  1. INFLIXIMAB, RECOMBINANT [Suspect]
     Active Substance: INFLIXIMAB
     Indication: CROHN^S DISEASE
     Route: 042
     Dates: start: 20190611
  2. INFLIXIMAB, RECOMBINANT [Suspect]
     Active Substance: INFLIXIMAB
     Dosage: DILUTE 2 VIALS IN 250 ML OF SALINE SOLUTION 0.9% AND RUN INTO 2 HOURS
     Route: 042

REACTIONS (5)
  - Drug ineffective [Unknown]
  - Intestinal stenosis [Unknown]
  - Gastrointestinal inflammation [Unknown]
  - Off label use [Unknown]
  - Inappropriate schedule of product administration [Unknown]

NARRATIVE: CASE EVENT DATE: 2020
